FAERS Safety Report 25213867 (Version 1)
Quarter: 2025Q2

REPORT INFORMATION
  Report Type: Report from Study
  Country: CA (occurrence: CA)
  Receive Date: 20250418
  Receipt Date: 20250418
  Transmission Date: 20250716
  Serious: Yes (Hospitalization, Other)
  Sender: TAKEDA
  Company Number: CA-TAKEDA-CA201915980

PATIENT
  Age: 48 Year
  Sex: Female

DRUGS (66)
  1. ICATIBANT [Suspect]
     Active Substance: ICATIBANT ACETATE
     Indication: Hereditary angioedema with C1 esterase inhibitor deficiency
  2. ICATIBANT [Suspect]
     Active Substance: ICATIBANT ACETATE
  3. ICATIBANT [Suspect]
     Active Substance: ICATIBANT ACETATE
  4. ICATIBANT [Suspect]
     Active Substance: ICATIBANT ACETATE
  5. ICATIBANT [Suspect]
     Active Substance: ICATIBANT ACETATE
  6. ICATIBANT [Suspect]
     Active Substance: ICATIBANT ACETATE
  7. ICATIBANT [Suspect]
     Active Substance: ICATIBANT ACETATE
  8. ICATIBANT [Suspect]
     Active Substance: ICATIBANT ACETATE
  9. ICATIBANT [Suspect]
     Active Substance: ICATIBANT ACETATE
  10. ICATIBANT [Suspect]
     Active Substance: ICATIBANT ACETATE
  11. ICATIBANT [Suspect]
     Active Substance: ICATIBANT ACETATE
  12. ICATIBANT [Suspect]
     Active Substance: ICATIBANT ACETATE
  13. ICATIBANT [Suspect]
     Active Substance: ICATIBANT ACETATE
  14. ICATIBANT [Suspect]
     Active Substance: ICATIBANT ACETATE
  15. ICATIBANT [Suspect]
     Active Substance: ICATIBANT ACETATE
  16. ICATIBANT [Suspect]
     Active Substance: ICATIBANT ACETATE
  17. ICATIBANT [Suspect]
     Active Substance: ICATIBANT ACETATE
  18. ICATIBANT [Suspect]
     Active Substance: ICATIBANT ACETATE
  19. ICATIBANT [Suspect]
     Active Substance: ICATIBANT ACETATE
  20. ICATIBANT [Suspect]
     Active Substance: ICATIBANT ACETATE
  21. ICATIBANT [Suspect]
     Active Substance: ICATIBANT ACETATE
  22. ICATIBANT [Suspect]
     Active Substance: ICATIBANT ACETATE
  23. ICATIBANT [Suspect]
     Active Substance: ICATIBANT ACETATE
  24. ICATIBANT [Suspect]
     Active Substance: ICATIBANT ACETATE
  25. ICATIBANT [Suspect]
     Active Substance: ICATIBANT ACETATE
  26. ICATIBANT [Suspect]
     Active Substance: ICATIBANT ACETATE
  27. ICATIBANT [Suspect]
     Active Substance: ICATIBANT ACETATE
  28. ICATIBANT [Suspect]
     Active Substance: ICATIBANT ACETATE
  29. ICATIBANT [Suspect]
     Active Substance: ICATIBANT ACETATE
  30. ICATIBANT [Suspect]
     Active Substance: ICATIBANT ACETATE
  31. ICATIBANT [Suspect]
     Active Substance: ICATIBANT ACETATE
  32. ICATIBANT [Suspect]
     Active Substance: ICATIBANT ACETATE
  33. ICATIBANT [Suspect]
     Active Substance: ICATIBANT ACETATE
  34. ICATIBANT [Suspect]
     Active Substance: ICATIBANT ACETATE
  35. ICATIBANT [Suspect]
     Active Substance: ICATIBANT ACETATE
  36. ICATIBANT [Suspect]
     Active Substance: ICATIBANT ACETATE
  37. ICATIBANT [Suspect]
     Active Substance: ICATIBANT ACETATE
  38. ICATIBANT [Suspect]
     Active Substance: ICATIBANT ACETATE
  39. ICATIBANT [Suspect]
     Active Substance: ICATIBANT ACETATE
  40. ICATIBANT [Suspect]
     Active Substance: ICATIBANT ACETATE
  41. ICATIBANT [Suspect]
     Active Substance: ICATIBANT ACETATE
  42. ICATIBANT [Suspect]
     Active Substance: ICATIBANT ACETATE
  43. ICATIBANT [Suspect]
     Active Substance: ICATIBANT ACETATE
  44. ICATIBANT [Suspect]
     Active Substance: ICATIBANT ACETATE
  45. ICATIBANT [Suspect]
     Active Substance: ICATIBANT ACETATE
  46. ICATIBANT [Suspect]
     Active Substance: ICATIBANT ACETATE
  47. ICATIBANT [Suspect]
     Active Substance: ICATIBANT ACETATE
  48. ICATIBANT [Suspect]
     Active Substance: ICATIBANT ACETATE
  49. ICATIBANT [Suspect]
     Active Substance: ICATIBANT ACETATE
  50. ICATIBANT [Suspect]
     Active Substance: ICATIBANT ACETATE
  51. TAKHZYRO [Suspect]
     Active Substance: LANADELUMAB-FLYO
     Indication: Hereditary angioedema with C1 esterase inhibitor deficiency
  52. TAKHZYRO [Suspect]
     Active Substance: LANADELUMAB-FLYO
     Dosage: 300 MILLIGRAM, Q4WEEKS
     Dates: start: 20200124
  53. TAKHZYRO [Suspect]
     Active Substance: LANADELUMAB-FLYO
  54. TAKHZYRO [Suspect]
     Active Substance: LANADELUMAB-FLYO
  55. TAKHZYRO [Suspect]
     Active Substance: LANADELUMAB-FLYO
     Dosage: UNK, Q4WEEKS
  56. BERINERT [Concomitant]
     Active Substance: HUMAN C1-ESTERASE INHIBITOR
     Indication: Hereditary angioedema
     Dosage: 3000 INTERNATIONAL UNIT, Q72H
     Dates: start: 20180921
  57. EPIPEN [Concomitant]
     Active Substance: EPINEPHRINE
  58. RELPAX [Concomitant]
     Active Substance: ELETRIPTAN HYDROBROMIDE
     Indication: Migraine
  59. TYLENOL [Concomitant]
     Active Substance: ACETAMINOPHEN
  60. ADVIL [Concomitant]
     Active Substance: IBUPROFEN
  61. CINRYZE [Concomitant]
     Active Substance: HUMAN C1-ESTERASE INHIBITOR
  62. MORPHINE [Concomitant]
     Active Substance: MORPHINE
  63. TUMS [Concomitant]
     Active Substance: CALCIUM CARBONATE
  64. GRAVOL [Concomitant]
     Active Substance: DIMENHYDRINATE
  65. Reactine [Concomitant]
  66. ZOPICLONE [Concomitant]
     Active Substance: ZOPICLONE

REACTIONS (32)
  - Intestinal obstruction [Unknown]
  - Visual impairment [Unknown]
  - Hereditary angioedema [Recovering/Resolving]
  - Injection site pruritus [Recovered/Resolved]
  - Abdominal discomfort [Unknown]
  - Pain [Recovering/Resolving]
  - Movement disorder [Unknown]
  - Weight decreased [Not Recovered/Not Resolved]
  - Bowel movement irregularity [Unknown]
  - Feeding disorder [Recovering/Resolving]
  - Productive cough [Unknown]
  - Contusion [Unknown]
  - Upper-airway cough syndrome [Recovered/Resolved]
  - Vomiting [Recovering/Resolving]
  - Muscular weakness [Unknown]
  - Tremor [Unknown]
  - Needle issue [Unknown]
  - Product availability issue [Not Recovered/Not Resolved]
  - Product storage error [Unknown]
  - Back pain [Unknown]
  - Incorrect dose administered [Unknown]
  - Dysgeusia [Unknown]
  - Abdominal pain upper [Unknown]
  - Abdominal pain [Recovered/Resolved]
  - Chest pain [Unknown]
  - Abdominal distension [Recovered/Resolved]
  - Injection site haemorrhage [Unknown]
  - Injection site urticaria [Not Recovered/Not Resolved]
  - Injection site pain [Recovering/Resolving]
  - Injection site reaction [Recovered/Resolved]
  - Injection site erythema [Not Recovered/Not Resolved]
  - Nausea [Recovering/Resolving]

NARRATIVE: CASE EVENT DATE: 20200702
